FAERS Safety Report 19270578 (Version 2)
Quarter: 2022Q1

REPORT INFORMATION
  Report Type: Spontaneous
  Country: US (occurrence: US)
  Receive Date: 20210518
  Receipt Date: 20220113
  Transmission Date: 20220423
  Serious: No
  Sender: FDA-Public Use
  Company Number: US-JNJFOC-20210516818

PATIENT
  Age: 38 Year
  Sex: Male

DRUGS (1)
  1. MENS ROGAINE EXTRA STRENGTH [Suspect]
     Active Substance: MINOXIDIL
     Indication: Alopecia
     Dosage: AMOUNT REQUIRED TWICE A DAY
     Route: 061
     Dates: start: 20210215

REACTIONS (4)
  - Hypertension [Recovered/Resolved]
  - Application site dryness [Recovered/Resolved]
  - Dizziness [Recovered/Resolved]
  - Application site irritation [Recovered/Resolved]

NARRATIVE: CASE EVENT DATE: 20210201
